FAERS Safety Report 7785701-X (Version None)
Quarter: 2011Q3

REPORT INFORMATION
  Report Type: 
  Country: None (occurrence: None)
  Receive Date: 20110929
  Receipt Date: 20110607
  Transmission Date: 20111222
  Serious: Yes (Hospitalization)
  Sender: FDA-Public Use
  Company Number: US-GLAXOSMITHKLINE-A0930600A

PATIENT
  Age: 5 Year
  Sex: Female

DRUGS (4)
  1. MIRALAX [Concomitant]
  2. TRILEPTAL [Suspect]
     Indication: EPILEPSY
     Dates: end: 20101101
  3. LAMICTAL [Suspect]
     Indication: EPILEPSY
     Dosage: 50MG PER DAY
     Route: 048
     Dates: start: 20100701, end: 20110521
  4. LAMICTAL [Suspect]
     Dosage: 100MG TWICE PER DAY
     Route: 048
     Dates: start: 20100101, end: 20110521

REACTIONS (2)
  - DRUG INEFFECTIVE [None]
  - CONVULSION [None]
